FAERS Safety Report 5898552-8 (Version None)
Quarter: 2008Q3

REPORT INFORMATION
  Report Type: 
  Country: None (occurrence: None)
  Receive Date: 20080925
  Receipt Date: 20080121
  Transmission Date: 20090109
  Serious: No
  Sender: FDA-Public Use
  Company Number: A0704366A

PATIENT
  Age: 27 Year
  Sex: Female

DRUGS (3)
  1. WELLBUTRIN XL [Suspect]
     Indication: DEPRESSION
     Dosage: 300MG PER DAY
     Route: 048
  2. KLONOPIN [Concomitant]
  3. NUVARING [Concomitant]

REACTIONS (3)
  - BALANCE DISORDER [None]
  - DRY MOUTH [None]
  - DYSARTHRIA [None]
